FAERS Safety Report 12821047 (Version 1)
Quarter: 2016Q4

REPORT INFORMATION
  Report Type: Spontaneous
  Country: US (occurrence: US)
  Receive Date: 20161007
  Receipt Date: 20161007
  Transmission Date: 20170207
  Serious: No
  Sender: FDA-Public Use
  Company Number: US-ASTRAZENECA-2016SF01898

PATIENT
  Age: 847 Month
  Sex: Female
  Weight: 72.6 kg

DRUGS (7)
  1. UNK   NOT SPECIFIED [Concomitant]
     Indication: BLOOD PRESSURE MEASUREMENT
     Route: 048
  2. UNK NOT SPECIFIED [Concomitant]
     Route: 048
  3. UNK  NOT SPECIFIED [Concomitant]
     Indication: BLOOD PRESSURE MEASUREMENT
     Route: 048
  4. ASPIRIN. [Concomitant]
     Active Substance: ASPIRIN
     Indication: MYOCARDIAL INFARCTION
     Route: 048
     Dates: start: 201609
  5. BRILINTA [Suspect]
     Active Substance: TICAGRELOR
     Indication: MYOCARDIAL INFARCTION
     Route: 048
     Dates: start: 201609
  6. BRILINTA [Suspect]
     Active Substance: TICAGRELOR
     Indication: PLATELET DISORDER
     Route: 048
     Dates: start: 201609
  7. BRILINTA [Suspect]
     Active Substance: TICAGRELOR
     Indication: STENT PLACEMENT
     Route: 048
     Dates: start: 201609

REACTIONS (8)
  - Appetite disorder [Unknown]
  - Thirst [Unknown]
  - Dry mouth [Unknown]
  - Fatigue [Unknown]
  - Nervousness [Unknown]
  - Confusional state [Unknown]
  - Weight decreased [Unknown]
  - Gait disturbance [Unknown]

NARRATIVE: CASE EVENT DATE: 201609
